FAERS Safety Report 6543598-X (Version None)
Quarter: 2010Q1

REPORT INFORMATION
  Report Type: 
  Country: None (occurrence: None)
  Receive Date: 20100119
  Receipt Date: 20100119
  Transmission Date: 20100710
  Serious: No
  Sender: FDA-Public Use
  Company Number: None

PATIENT
  Age: 75 Year
  Sex: Female
  Weight: 95.7 kg

DRUGS (1)
  1. METHYLENE BLUE [Suspect]
     Dosage: 0.5 ML X1 IV
     Route: 042
     Dates: start: 20100108

REACTIONS (2)
  - DYSPNOEA [None]
  - IMMEDIATE POST-INJECTION REACTION [None]
